FAERS Safety Report 18590034 (Version 1)
Quarter: 2020Q4

REPORT INFORMATION
  Report Type: Spontaneous
  Country: US (occurrence: US)
  Receive Date: 20201207
  Receipt Date: 20201207
  Transmission Date: 20210114
  Serious: Yes (Life-Threatening, Disabling, Other)
  Sender: FDA-Public Use
  Company Number: None

PATIENT
  Age: 23 Year
  Sex: Female
  Weight: 81.65 kg

DRUGS (1)
  1. NEXPLANON [Suspect]
     Active Substance: ETONOGESTREL
     Dates: start: 20160205, end: 20180720

REACTIONS (9)
  - Mood swings [None]
  - Kidney infection [None]
  - Acne [None]
  - Migraine [None]
  - Depression [None]
  - Infertility [None]
  - Pharyngitis streptococcal [None]
  - Viral infection [None]
  - Ear infection [None]

NARRATIVE: CASE EVENT DATE: 20201101
